FAERS Safety Report 5969307-0 (Version None)
Quarter: 2008Q4

REPORT INFORMATION
  Report Type: 
  Country: None (occurrence: None)
  Receive Date: 20081126
  Receipt Date: 20081124
  Transmission Date: 20090506
  Serious: Yes (Other)
  Sender: FDA-Public Use
  Company Number: GB-BRISTOL-MYERS SQUIBB COMPANY-14417398

PATIENT
  Age: 40 Year
  Sex: Female
  Weight: 64 kg

DRUGS (3)
  1. DASATINIB [Suspect]
     Indication: CHRONIC MYELOID LEUKAEMIA
     Dosage: STOPPED ON 05NOV08.
     Route: 048
     Dates: start: 20070619, end: 20081105
  2. IBUPROFEN TABLETS [Concomitant]
     Indication: OSTEOARTHRITIS
     Route: 048
     Dates: start: 20060101, end: 20081022
  3. PARACETAMOL [Concomitant]
     Indication: OSTEOARTHRITIS
     Route: 048
     Dates: start: 20070101

REACTIONS (1)
  - NEPHROTIC SYNDROME [None]
